FAERS Safety Report 9271207 (Version 1)
Quarter: 2013Q2

REPORT INFORMATION
  Report Type: Spontaneous
  Country: PH (occurrence: PH)
  Receive Date: 20130506
  Receipt Date: 20130506
  Transmission Date: 20140414
  Serious: Yes (Hospitalization)
  Sender: FDA-Public Use
  Company Number: PH-009507513-1304PHL006598

PATIENT
  Age: 47 Year
  Sex: Male

DRUGS (5)
  1. PEG-INTRON REDIPEN [Suspect]
     Indication: HEPATITIS C
     Dosage: 100 MICROGRAM, UNK;(WEEK 1); CURRENTLY 10-APR-2013 (37)
     Route: 058
     Dates: start: 20120731, end: 20130417
  2. REBETOL [Suspect]
     Dosage: 5 (3-2) DF, QD
     Route: 048
     Dates: start: 20120731, end: 20130417
  3. LOSARTAN POTASSIUM [Concomitant]
     Indication: HYPERTENSION
     Dosage: UNK
  4. LOSARTAN POTASSIUM [Concomitant]
     Indication: ROUTINE HEALTH MAINTENANCE
  5. IBERET [Concomitant]
     Indication: MINERAL SUPPLEMENTATION

REACTIONS (4)
  - Dizziness [Recovered/Resolved]
  - Asthenia [Recovered/Resolved]
  - Vomiting [Recovered/Resolved]
  - Haemoglobin decreased [Unknown]
